FAERS Safety Report 7779833-X (Version None)
Quarter: 2011Q3

REPORT INFORMATION
  Report Type: 
  Country: None (occurrence: None)
  Receive Date: 20110927
  Receipt Date: 20110922
  Transmission Date: 20111222
  Serious: Yes (Death, Hospitalization)
  Sender: FDA-Public Use
  Company Number: IN-PFIZER INC-2011218066

PATIENT
  Age: 62 Year
  Sex: Male

DRUGS (1)
  1. SUTENT [Suspect]
     Indication: METASTATIC RENAL CELL CARCINOMA
     Dosage: 50 MG, 1X/DAY
     Route: 048
     Dates: start: 20110528, end: 20110804

REACTIONS (5)
  - METASTATIC RENAL CELL CARCINOMA [None]
  - ABNORMAL BEHAVIOUR [None]
  - FATIGUE [None]
  - DISEASE PROGRESSION [None]
  - VOMITING [None]
